FAERS Safety Report 12631218 (Version 2)
Quarter: 2016Q3

REPORT INFORMATION
  Report Type: Spontaneous
  Country: US (occurrence: US)
  Receive Date: 20160808
  Receipt Date: 20160808
  Transmission Date: 20161109
  Serious: No
  Sender: FDA-Public Use
  Company Number: US-BEH-2015052860

PATIENT
  Age: 52 Year
  Sex: Female
  Weight: 73.5 kg

DRUGS (17)
  1. SYMBICORT [Concomitant]
     Active Substance: BUDESONIDE\FORMOTEROL FUMARATE DIHYDRATE
  2. CAFFEINE. [Concomitant]
     Active Substance: CAFFEINE
  3. EPIPEN [Concomitant]
     Active Substance: EPINEPHRINE
     Indication: ANAPHYLACTIC REACTION
  4. ZOFRAN [Concomitant]
     Active Substance: ONDANSETRON HYDROCHLORIDE
  5. CLARITIN [Concomitant]
     Active Substance: LORATADINE
  6. HIZENTRA [Suspect]
     Active Substance: HUMAN IMMUNOGLOBULIN G
     Indication: ASTHMA
     Route: 058
     Dates: start: 20150730
  7. MULTIVITAMIN [Concomitant]
     Active Substance: VITAMINS
  8. LIALDA [Concomitant]
     Active Substance: MESALAMINE
  9. DIPHENHYDRAMINE. [Concomitant]
     Active Substance: DIPHENHYDRAMINE
  10. PREDNISONE. [Concomitant]
     Active Substance: PREDNISONE
  11. LEVALBUTEROL. [Concomitant]
     Active Substance: LEVALBUTEROL
  12. ACETAMINOPHEN. [Concomitant]
     Active Substance: ACETAMINOPHEN
  13. FLONASE [Concomitant]
     Active Substance: FLUTICASONE PROPIONATE
  14. XOLAIR [Concomitant]
     Active Substance: OMALIZUMAB
  15. LIDOCAINE. [Concomitant]
     Active Substance: LIDOCAINE
  16. STERILE WATER [Concomitant]
     Active Substance: WATER
  17. PROAIR HFA [Concomitant]
     Active Substance: ALBUTEROL SULFATE

REACTIONS (1)
  - Fatigue [Recovered/Resolved]

NARRATIVE: CASE EVENT DATE: 20150730
